FAERS Safety Report 11155663 (Version 1)
Quarter: 2015Q2

REPORT INFORMATION
  Report Type: Spontaneous
  Country: NL (occurrence: NL)
  Receive Date: 20150602
  Receipt Date: 20150602
  Transmission Date: 20150821
  Serious: Yes (Other)
  Sender: FDA-Public Use
  Company Number: NL-ACTAVIS-2015-10692

PATIENT
  Age: 54 Year
  Sex: Female

DRUGS (6)
  1. VALPROIC ACID. [Interacting]
     Active Substance: VALPROIC ACID
     Indication: EPILEPSY
     Dosage: 1000 MG + 1500 MG, DAILY
     Route: 048
  2. RIFAMPICIN (UNKNOWN) [Interacting]
     Active Substance: RIFAMPIN
     Dosage: 450 MG, BID
     Route: 048
  3. RIFAMPICIN (UNKNOWN) [Interacting]
     Active Substance: RIFAMPIN
     Indication: DEVICE RELATED INFECTION
     Dosage: 450 MG, BID
     Route: 042
  4. CARBAMAZEPINE (UNKNOWN) [Interacting]
     Active Substance: CARBAMAZEPINE
     Indication: EPILEPSY
     Dosage: 200 MG, BID
     Route: 048
  5. CLONAZEPAM (UNKNOWN) [Interacting]
     Active Substance: CLONAZEPAM
     Indication: EPILEPSY
     Dosage: 0.5 MG, BID
     Route: 048
  6. FLUCLOXACILLIN (UNKNOWN) [Suspect]
     Active Substance: FLUCLOXACILLIN
     Indication: DEVICE RELATED INFECTION
     Dosage: 1200 MG, CONTINUOUS INFUSION
     Route: 042

REACTIONS (3)
  - Seizure [Recovered/Resolved]
  - Anticonvulsant drug level below therapeutic [Recovered/Resolved]
  - Drug interaction [Recovered/Resolved]
